FAERS Safety Report 19763028 (Version 1)
Quarter: 2021Q3

REPORT INFORMATION
  Report Type: Spontaneous
  Country: US (occurrence: US)
  Receive Date: 20210826
  Receipt Date: 20210826
  Transmission Date: 20211014
  Serious: No
  Sender: FDA-Public Use
  Company Number: None

PATIENT

DRUGS (1)
  1. CORLANOR [Suspect]
     Active Substance: IVABRADINE HYDROCHLORIDE

REACTIONS (4)
  - Product label issue [None]
  - Product design issue [None]
  - Circumstance or information capable of leading to medication error [None]
  - Product label confusion [None]
